FAERS Safety Report 11685643 (Version 1)
Quarter: 2015Q4

REPORT INFORMATION
  Report Type: Spontaneous
  Country: IN (occurrence: IN)
  Receive Date: 20151030
  Receipt Date: 20151030
  Transmission Date: 20160304
  Serious: Yes (Life-Threatening, Hospitalization, Other)
  Sender: FDA-Public Use
  Company Number: IN-WATSON-2015-19718

PATIENT
  Age: 3 Year
  Sex: Male

DRUGS (1)
  1. PROPRANOLOL [Suspect]
     Active Substance: PROPRANOLOL\PROPRANOLOL HYDROCHLORIDE
     Indication: LONG QT SYNDROME CONGENITAL
     Dosage: HIGHEST DOSES
     Route: 065

REACTIONS (2)
  - Ventricular arrhythmia [Recovered/Resolved]
  - Cardiac arrest [Unknown]
